FAERS Safety Report 10188230 (Version 1)
Quarter: 2014Q2

REPORT INFORMATION
  Report Type: Spontaneous
  Country: GB (occurrence: GB)
  Receive Date: 20140522
  Receipt Date: 20140522
  Transmission Date: 20141212
  Serious: Yes (Other)
  Sender: FDA-Public Use
  Company Number: GB-TEVA-481368ISR

PATIENT
  Age: 42 Year
  Sex: Female

DRUGS (3)
  1. PREDNISOLONE [Suspect]
     Dosage: 5 MILLIGRAM DAILY;
     Route: 065
  2. PREDNISOLONE [Suspect]
     Dosage: 25 MILLIGRAM DAILY;
     Route: 065
  3. PREDNISOLONE [Suspect]
     Dosage: .7143 MILLIGRAM DAILY; 5 MG, TAPER TO 5 MG FROM 25 MG
     Route: 065

REACTIONS (4)
  - Abortion spontaneous [Unknown]
  - Exposure during pregnancy [Unknown]
  - Eye swelling [Unknown]
  - Fatigue [Unknown]
